FAERS Safety Report 4315667-6 (Version None)
Quarter: 2004Q1

REPORT INFORMATION
  Report Type: 
  Country: None (occurrence: None)
  Receive Date: 20040309
  Receipt Date: 20040226
  Transmission Date: 20041129
  Serious: Yes (Hospitalization)
  Sender: FDA-Public Use
  Company Number: 04P-163-0251678-00

PATIENT
  Age: 71 Year
  Sex: Female
  Weight: 92.9874 kg

DRUGS (7)
  1. HUMIRA [Suspect]
     Indication: RHEUMATOID ARTHRITIS
     Dosage: 40 MG, 1 IN 2 WK, SUBCUTANEOUS
     Route: 058
     Dates: start: 20030101, end: 20031220
  2. ATENOLOL [Concomitant]
  3. GLYBURIDE [Concomitant]
  4. TRAMADOL HCL [Concomitant]
  5. HYDROCHLORODIUREL [Concomitant]
  6. METHOTREXATE [Concomitant]
  7. ACTOS [Concomitant]

REACTIONS (7)
  - ABDOMINAL PAIN [None]
  - CHOLELITHIASIS [None]
  - FALL [None]
  - NEPHROLITHIASIS [None]
  - RIB FRACTURE [None]
  - SPLENIC RUPTURE [None]
  - UTERINE LEIOMYOMA [None]
